FAERS Safety Report 18505007 (Version 1)
Quarter: 2020Q4

REPORT INFORMATION
  Report Type: Spontaneous
  Country: TR (occurrence: TR)
  Receive Date: 20201115
  Receipt Date: 20201115
  Transmission Date: 20210114
  Serious: Yes (Other)
  Sender: FDA-Public Use
  Company Number: TR-CELLTRION INC.-2020TR031125

PATIENT

DRUGS (3)
  1. AZATHIOPRINE. [Concomitant]
     Active Substance: AZATHIOPRINE
     Indication: ACQUIRED HAEMOPHILIA
     Dosage: 150 MG, / DAY
  2. CYCLOPHOSPHAMIDE. [Concomitant]
     Active Substance: CYCLOPHOSPHAMIDE
     Indication: ANTI FACTOR VIII ANTIBODY POSITIVE
     Dosage: 50 MG, /DAY
  3. TRUXIMA [Suspect]
     Active Substance: RITUXIMAB-ABBS
     Indication: HAEMATOMA
     Dosage: 500 MG, /WEEK

REACTIONS (2)
  - Conjunctival haemorrhage [Recovered/Resolved]
  - Off label use [Unknown]
